FAERS Safety Report 10234232 (Version 1)
Quarter: 2014Q1

REPORT INFORMATION
  Report Type: Spontaneous
  Country: US (occurrence: None)
  Receive Date: 20140306
  Receipt Date: 20140306
  Transmission Date: 20141002
  Serious: Yes (Other)
  Sender: FDA-Public Use
  Company Number: 163-21880-13120238

PATIENT
  Age: 69 Year
  Sex: Male

DRUGS (7)
  1. REVLIMID (LENALIDOMIDE) (10 MILLIGRAM, CAPSULES) [Suspect]
     Indication: PLASMA CELL MYELOMA
     Dosage: 10 MG, 21 IN 28 D, PO
     Route: 048
     Dates: start: 20130927
  2. LOSARTAN (LOSARTAN) [Concomitant]
  3. PRAVASTATIN (PRAVASTATIN) [Concomitant]
  4. GABAPENTIN (GABAPENTIN) [Concomitant]
  5. OMEPRAZOLE (OMEPRAZOLE) [Concomitant]
  6. TERAZOSIN (TERAZOSIN) [Concomitant]
  7. NORTRIPTYLINE (NORTRIPRYLINE) [Concomitant]

REACTIONS (1)
  - Deep vein thrombosis [None]
